FAERS Safety Report 12832105 (Version 2)
Quarter: 2016Q4

REPORT INFORMATION
  Report Type: Spontaneous
  Country: DE (occurrence: DE)
  Receive Date: 20161010
  Receipt Date: 20161031
  Transmission Date: 20170207
  Serious: Yes (Other)
  Sender: FDA-Public Use
  Company Number: PHHY2016DE137991

PATIENT
  Sex: Male
  Weight: 86 kg

DRUGS (8)
  1. SEEBRI BREEZHALER [Suspect]
     Active Substance: GLYCOPYRROLATE
     Indication: CHRONIC OBSTRUCTIVE PULMONARY DISEASE
     Dosage: 1 DF, QD
     Route: 065
     Dates: start: 20130115, end: 20140124
  2. CYCLOCAPS BUDESONID [Concomitant]
     Indication: CHRONIC OBSTRUCTIVE PULMONARY DISEASE
     Dosage: 1600 UG, QD
     Route: 065
     Dates: start: 20120208
  3. AERODUR [Concomitant]
     Indication: CHRONIC OBSTRUCTIVE PULMONARY DISEASE
     Dosage: UNK UNK, PRN
     Route: 065
     Dates: start: 20120208
  4. DAXAS [Concomitant]
     Active Substance: ROFLUMILAST
     Indication: CHRONIC OBSTRUCTIVE PULMONARY DISEASE
     Dosage: 500 UG, QD
     Route: 065
     Dates: start: 20130626
  5. SALBU [Concomitant]
     Indication: CHRONIC OBSTRUCTIVE PULMONARY DISEASE
     Dosage: UNK UNK, PRN
     Route: 055
     Dates: start: 20120208
  6. FORMOTEROL [Suspect]
     Active Substance: FORMOTEROL
     Indication: CHRONIC OBSTRUCTIVE PULMONARY DISEASE
     Dosage: 1 DF, QD
     Route: 065
     Dates: start: 20120108, end: 20140124
  7. VIANI [Concomitant]
     Active Substance: FLUTICASONE PROPIONATE\SALMETEROL XINAFOATE
     Indication: PRODUCT USED FOR UNKNOWN INDICATION
     Dosage: UNK
     Route: 065
     Dates: start: 2009
  8. SANASTHMAX [Concomitant]
     Indication: CHRONIC OBSTRUCTIVE PULMONARY DISEASE
     Dosage: UNK UNK, PRN
     Route: 055
     Dates: start: 20130115

REACTIONS (1)
  - Infective exacerbation of chronic obstructive airways disease [Recovered/Resolved]

NARRATIVE: CASE EVENT DATE: 20140120
